FAERS Safety Report 18119340 (Version 1)
Quarter: 2020Q3

REPORT INFORMATION
  Report Type: Spontaneous
  Country: PL (occurrence: PL)
  Receive Date: 20200806
  Receipt Date: 20200806
  Transmission Date: 20201103
  Serious: Yes (Other)
  Sender: FDA-Public Use
  Company Number: NVSC2020PL215444

PATIENT
  Age: 60 Year
  Sex: Female

DRUGS (1)
  1. OSPAMOX [Suspect]
     Active Substance: AMOXICILLIN
     Indication: PHARYNGITIS
     Dosage: UNK
     Route: 065
     Dates: start: 20200702, end: 20200704

REACTIONS (3)
  - Stomatitis [Unknown]
  - Oral discomfort [Unknown]
  - Rash [Unknown]

NARRATIVE: CASE EVENT DATE: 202007
